FAERS Safety Report 8574571-8 (Version None)
Quarter: 2012Q3

REPORT INFORMATION
  Report Type: 
  Country: None (occurrence: None)
  Receive Date: 20120806
  Receipt Date: 20120727
  Transmission Date: 20120928
  Serious: No
  Sender: FDA-Public Use
  Company Number: US-009507513-1207USA011503

PATIENT

DRUGS (6)
  1. FUROSEMIDE [Concomitant]
  2. LISINOPRIL [Concomitant]
  3. OXYCODONE HCL [Concomitant]
  4. EFFEXOR [Concomitant]
  5. VYTORIN [Suspect]
     Indication: BLOOD CHOLESTEROL INCREASED
     Dosage: 10-40 MG,QD
     Route: 048
     Dates: start: 20120720
  6. ATENOLOL [Concomitant]

REACTIONS (4)
  - WEIGHT INCREASED [None]
  - JOINT SWELLING [None]
  - SWELLING FACE [None]
  - ARTHRALGIA [None]
